FAERS Safety Report 12288505 (Version 2)
Quarter: 2016Q2

REPORT INFORMATION
  Report Type: Spontaneous
  Country: US (occurrence: US)
  Receive Date: 20160420
  Receipt Date: 20160506
  Transmission Date: 20160815
  Serious: Yes (Other)
  Sender: FDA-Public Use
  Company Number: US-BIOGEN-2016BI00222783

PATIENT
  Sex: Female

DRUGS (1)
  1. AVONEX [Suspect]
     Active Substance: INTERFERON BETA-1A
     Indication: MULTIPLE SCLEROSIS
     Route: 065

REACTIONS (8)
  - Chest pain [Recovered/Resolved]
  - Malaise [Unknown]
  - Dyspnoea [Recovered/Resolved]
  - Heart injury [Unknown]
  - Influenza like illness [Unknown]
  - Myocardial infarction [Unknown]
  - Cardiac arrest [Unknown]
  - General symptom [Unknown]
